FAERS Safety Report 24319665 (Version 4)
Quarter: 2024Q4

REPORT INFORMATION
  Report Type: Report from Study
  Country: US (occurrence: US)
  Receive Date: 20240914
  Receipt Date: 20241125
  Transmission Date: 20250114
  Serious: Yes (Death)
  Sender: ABBVIE
  Company Number: US-ABBVIE-5922323

PATIENT
  Age: 78 Year
  Sex: Male
  Weight: 108 kg

DRUGS (4)
  1. HUMIRA [Suspect]
     Active Substance: ADALIMUMAB
     Indication: Colitis ulcerative
     Dosage: DOSAGE: 40 MG/ML FORM STRENGTH: 40 MG
     Route: 058
     Dates: start: 2020, end: 20240910
  2. HUMIRA [Suspect]
     Active Substance: ADALIMUMAB
     Route: 058
  3. ZYRTEC [Concomitant]
     Active Substance: CETIRIZINE HYDROCHLORIDE
     Indication: Multiple allergies
     Dosage: AS NEEDED
     Route: 048
  4. XANAX [Concomitant]
     Active Substance: ALPRAZOLAM
     Indication: Anxiety
     Dosage: AS NEEDED?STRENGTH: 1 MG
     Route: 048

REACTIONS (2)
  - Aortic aneurysm [Fatal]
  - Knee operation [Unknown]

NARRATIVE: CASE EVENT DATE: 20240101
